FAERS Safety Report 4778182-1 (Version None)
Quarter: 2005Q3

REPORT INFORMATION
  Report Type: 
  Country: None (occurrence: None)
  Receive Date: 20050923
  Receipt Date: 20050923
  Transmission Date: 20060218
  Serious: Yes (Other)
  Sender: FDA-Public Use
  Company Number: None

PATIENT
  Sex: Male
  Weight: 79.5609 kg

DRUGS (5)
  1. RABEPRAZOLE SODIUM [Suspect]
     Indication: BARRETT'S OESOPHAGUS
     Dosage: 20MG BID  PO
     Route: 048
     Dates: start: 20010921, end: 20020506
  2. RABEPRAZOLE SODIUM [Suspect]
     Indication: OESOPHAGITIS
     Dosage: 20MG BID  PO
     Route: 048
     Dates: start: 20010921, end: 20020506
  3. ACETAMINOPHEN [Concomitant]
  4. FEXOFENADINE HCL [Concomitant]
  5. SIMVASTATIN [Concomitant]

REACTIONS (1)
  - PAIN [None]
